FAERS Safety Report 7372796-0 (Version None)
Quarter: 2011Q1

REPORT INFORMATION
  Report Type: 
  Country: None (occurrence: None)
  Receive Date: 20110324
  Receipt Date: 20110315
  Transmission Date: 20110831
  Serious: Yes (Other)
  Sender: FDA-Public Use
  Company Number: DE-ROCHE-748740

PATIENT
  Sex: Male
  Weight: 78 kg

DRUGS (9)
  1. ROACTEMRA [Suspect]
     Route: 042
     Dates: start: 20100910
  2. FOLIC ACID [Concomitant]
     Route: 048
     Dates: start: 20070801
  3. METHOTREXATE [Concomitant]
     Route: 048
     Dates: start: 20090513
  4. ROACTEMRA [Suspect]
     Route: 042
     Dates: start: 20101008
  5. ROACTEMRA [Suspect]
     Route: 042
     Dates: start: 20101109
  6. SALBUTAMOL [Concomitant]
     Dosage: 1-2 PER DAY AS NECESSARY
     Route: 055
  7. ROACTEMRA [Suspect]
     Route: 042
     Dates: start: 20100813
  8. ROACTEMRA [Suspect]
     Route: 042
     Dates: start: 20090604
  9. DICLAC [Concomitant]
     Route: 048

REACTIONS (2)
  - ANAPHYLACTIC REACTION [None]
  - CIRCULATORY COLLAPSE [None]
